FAERS Safety Report 4439103-4 (Version None)
Quarter: 2004Q3

REPORT INFORMATION
  Report Type: 
  Country: None (occurrence: None)
  Receive Date: 20040831
  Receipt Date: 20040818
  Transmission Date: 20050211
  Serious: Yes (Other)
  Sender: FDA-Public Use
  Company Number: 2004UW16485

PATIENT
  Age: 61 Year
  Sex: Female
  Weight: 109 kg

DRUGS (4)
  1. CRESTOR [Suspect]
     Dosage: 10 MG QD PO
     Dates: start: 20040524, end: 20040628
  2. TIAZAC [Concomitant]
  3. ASPIRIN [Concomitant]
  4. PROTONIX [Concomitant]

REACTIONS (2)
  - BRADYCARDIA [None]
  - DIZZINESS [None]
